FAERS Safety Report 15017345 (Version 3)
Quarter: 2019Q2

REPORT INFORMATION
  Report Type: Report from Study
  Country: ES (occurrence: ES)
  Receive Date: 20180615
  Receipt Date: 20190522
  Transmission Date: 20190711
  Serious: Yes (Death, Life-Threatening, Hospitalization, Other)
  Sender: FDA-Public Use
  Company Number: ES-BRISTOL-MYERS SQUIBB COMPANY-BMS-2018-049605

PATIENT
  Age: 75 Year
  Sex: Male
  Weight: 173 kg

DRUGS (6)
  1. RIVOTRIL [Concomitant]
     Active Substance: CLONAZEPAM
     Indication: PRODUCT USED FOR UNKNOWN INDICATION
     Dosage: 0.15 MILLIGRAM
     Route: 048
     Dates: start: 2017
  2. IPILIMUMAB [Suspect]
     Active Substance: IPILIMUMAB
     Indication: NON-SMALL CELL LUNG CANCER
     Dosage: 85 MILLIGRAM
     Route: 042
     Dates: start: 20180220, end: 20180220
  3. CARBOPLATIN. [Suspect]
     Active Substance: CARBOPLATIN
     Indication: NON-SMALL CELL LUNG CANCER
     Dosage: 662 MILLIGRAM
     Route: 042
     Dates: start: 20180220, end: 20180220
  4. BUSCAPINA [Concomitant]
     Indication: PRODUCT USED FOR UNKNOWN INDICATION
     Dosage: 60 MILLIGRAM
     Route: 048
     Dates: start: 20180327, end: 20180528
  5. NIVOLUMAB [Suspect]
     Active Substance: NIVOLUMAB
     Indication: NON-SMALL CELL LUNG CANCER
     Dosage: 360 MILLIGRAM
     Route: 042
     Dates: start: 20180220, end: 20180220
  6. PEMETREXED DISODIUM [Suspect]
     Active Substance: PEMETREXED DISODIUM
     Indication: NON-SMALL CELL LUNG CANCER
     Dosage: 995 MILLIGRAM
     Route: 065
     Dates: start: 20180220, end: 20180220

REACTIONS (1)
  - Hepatotoxicity [Fatal]

NARRATIVE: CASE EVENT DATE: 20180411
